FAERS Safety Report 8297302-8 (Version None)
Quarter: 2012Q2

REPORT INFORMATION
  Report Type: 
  Country: None (occurrence: None)
  Receive Date: 20120416
  Receipt Date: 20120403
  Transmission Date: 20120825
  Serious: Yes (Hospitalization)
  Sender: FDA-Public Use
  Company Number: 7114931

PATIENT
  Age: 85 Year
  Sex: Female

DRUGS (3)
  1. PYOSTACINE (PRISTINAMYCIN) (PRISTINAMYCIN) [Suspect]
     Indication: PYELONEPHRITIS
     Dosage: 3 GM (1 GM, 3 IN 1 D), ORAL
     Route: 048
     Dates: start: 20111207, end: 20111220
  2. LEVOTHYROX 75 (LEVOTHYROXINE SODIUM) (TABLET) (LEVOTHYROXINE SODIUM) [Suspect]
     Indication: PRODUCT USED FOR UNKNOWN INDICATION
     Dosage: 75 MCG (75 MCG 1 IN 1 D), ORAL
     Route: 048
  3. LASILIX SPECIAL (FUROSEMIDE) (500 MG, TABLET) (FUROSEMIDE) [Suspect]
     Dosage: 250 MG (250 MG, 1 IN 1 D), ORAL
     Route: 048
     Dates: end: 20120106

REACTIONS (1)
  - DERMATITIS EXFOLIATIVE [None]
